FAERS Safety Report 6306701-2 (Version None)
Quarter: 2009Q3

REPORT INFORMATION
  Report Type: 
  Country: None (occurrence: None)
  Receive Date: 20090812
  Receipt Date: 20090428
  Transmission Date: 20100115
  Serious: No
  Sender: FDA-Public Use
  Company Number: A0781045A

PATIENT
  Age: 52 Year
  Sex: Female

DRUGS (6)
  1. VERAMYST [Suspect]
     Dosage: 2SPR PER DAY
     Route: 045
     Dates: start: 20090417
  2. ADVAIR DISKUS 100/50 [Concomitant]
  3. ZANTAC [Concomitant]
  4. PRILOSEC [Concomitant]
  5. PREMARIN [Concomitant]
  6. VENTOLIN [Concomitant]

REACTIONS (1)
  - NAUSEA [None]
